FAERS Safety Report 13410253 (Version 1)
Quarter: 2017Q2

REPORT INFORMATION
  Report Type: Spontaneous
  Country: US (occurrence: US)
  Receive Date: 20170406
  Receipt Date: 20170406
  Transmission Date: 20170830
  Serious: No
  Sender: FDA-Public Use
  Company Number: US-ARBOR PHARMACEUTICALS, LLC-US-2016ARB000383

PATIENT
  Age: 11 Year
  Sex: Male

DRUGS (2)
  1. SKLICE [Suspect]
     Active Substance: IVERMECTIN
     Dosage: UNK, SINGLE
     Route: 061
     Dates: start: 20160522, end: 20160522
  2. SKLICE [Suspect]
     Active Substance: IVERMECTIN
     Indication: LICE INFESTATION
     Dosage: UNK
     Dates: start: 201605, end: 201605

REACTIONS (2)
  - Wrong technique in product usage process [Unknown]
  - Drug ineffective [Unknown]

NARRATIVE: CASE EVENT DATE: 201605
